FAERS Safety Report 4860867-X (Version None)
Quarter: 2005Q4

REPORT INFORMATION
  Report Type: 
  Country: None (occurrence: None)
  Receive Date: 20051220
  Receipt Date: 20030821
  Transmission Date: 20060501
  Serious: Yes (Hospitalization)
  Sender: FDA-Public Use
  Company Number: CA-BRISTOL-MYERS SQUIBB COMPANY-12363388

PATIENT
  Age: 72 Year
  Sex: Male
  Weight: 78 kg

DRUGS (14)
  1. TEQUIN [Suspect]
     Indication: PNEUMONIA
     Route: 048
     Dates: start: 20030807, end: 20030815
  2. PULMICORT [Concomitant]
     Dosage: ^BY NEB^
     Route: 055
  3. SALBUTAMOL [Concomitant]
     Dosage: ^BY NEB^
     Route: 055
  4. ATROVENT [Concomitant]
     Dosage: ^BY NEB^
     Route: 055
  5. SALMETEROL [Concomitant]
     Dosage: 2 PUFFS
  6. NITROGLYCERIN [Concomitant]
     Dosage: 12 HR/DAY
     Route: 062
  7. ASPIRIN [Concomitant]
  8. ZOPICLONE [Concomitant]
     Dosage: HOUR OF SLEEP
  9. CILAZAPRIL [Concomitant]
  10. SPIRONOLACTONE [Concomitant]
  11. LASIX [Concomitant]
     Route: 048
  12. VERAPAMIL [Concomitant]
  13. QUININE [Concomitant]
     Dosage: HOUR OF SLEEP
  14. INHIBACE [Concomitant]

REACTIONS (1)
  - BLOOD GLUCOSE INCREASED [None]
